FAERS Safety Report 8953815 (Version 1)
Quarter: 2012Q4

REPORT INFORMATION
  Report Type: Report from Study
  Country: US (occurrence: US)
  Receive Date: 20121206
  Receipt Date: 20121206
  Transmission Date: 20130627
  Serious: Yes (Other)
  Sender: FDA-Public Use
  Company Number: US-ABBOTT-12P-163-1014379-00

PATIENT
  Age: 73 None
  Sex: Male
  Weight: 95.34 kg

DRUGS (1)
  1. LUPRON DEPOT [Suspect]
     Indication: PROSTATE CANCER
     Dates: start: 20100816, end: 201209

REACTIONS (2)
  - Gait disturbance [Recovered/Resolved]
  - Orchidectomy [Recovered/Resolved]
